FAERS Safety Report 4582400-2 (Version None)
Quarter: 2005Q1

REPORT INFORMATION
  Report Type: 
  Country: None (occurrence: None)
  Receive Date: 20050119
  Receipt Date: 20040916
  Transmission Date: 20050727
  Serious: Yes (Other)
  Sender: FDA-Public Use
  Company Number: US-JNJFOC-20040306133

PATIENT
  Age: 54 Year
  Sex: Female

DRUGS (5)
  1. DOXIL [Suspect]
     Indication: UTERINE CANCER
     Dosage: 7 CYCLES
     Dates: start: 20030901, end: 20040501
  2. LAMICTAL [Concomitant]
  3. ZOLOFT [Concomitant]
  4. ASPIRIN TAB [Concomitant]
  5. PROCRIT [Concomitant]

REACTIONS (11)
  - ASTHENIA [None]
  - DEPRESSION [None]
  - DIARRHOEA [None]
  - DIZZINESS [None]
  - FLATULENCE [None]
  - INFLUENZA LIKE ILLNESS [None]
  - MALIGNANT NEOPLASM PROGRESSION [None]
  - PALMAR-PLANTAR ERYTHRODYSAESTHESIA SYNDROME [None]
  - STOMATITIS [None]
  - WEIGHT DECREASED [None]
  - WHITE BLOOD CELL COUNT DECREASED [None]
